FAERS Safety Report 25318376 (Version 1)
Quarter: 2025Q2

REPORT INFORMATION
  Report Type: Spontaneous
  Country: US (occurrence: US)
  Receive Date: 20250515
  Receipt Date: 20250515
  Transmission Date: 20250716
  Serious: No
  Sender: PFIZER
  Company Number: US-PFIZER INC-202500101368

PATIENT
  Age: 73 Year
  Sex: Female
  Weight: 99.773 kg

DRUGS (1)
  1. PAXLOVID [Suspect]
     Active Substance: NIRMATRELVIR\RITONAVIR
     Indication: COVID-19 treatment
     Dates: start: 20250511

REACTIONS (3)
  - Diarrhoea [Unknown]
  - Dyschezia [Unknown]
  - Gastrointestinal pain [Unknown]
